FAERS Safety Report 9361785 (Version 2)
Quarter: 2013Q2

REPORT INFORMATION
  Report Type: Report from Study
  Country: CA (occurrence: CA)
  Receive Date: 20130621
  Receipt Date: 20130627
  Transmission Date: 20140414
  Serious: Yes (Other)
  Sender: FDA-Public Use
  Company Number: CA-JNJFOC-20130613231

PATIENT
  Sex: Male

DRUGS (1)
  1. SIMPONI [Suspect]
     Indication: ANKYLOSING SPONDYLITIS
     Route: 058
     Dates: start: 20111104, end: 20121004

REACTIONS (2)
  - Prostate cancer [Unknown]
  - Infection [Unknown]
